FAERS Safety Report 9049848 (Version 1)
Quarter: 2013Q1

REPORT INFORMATION
  Report Type: Spontaneous
  Country: IT (occurrence: IT)
  Receive Date: 20130205
  Receipt Date: 20130205
  Transmission Date: 20140127
  Serious: Yes (Other)
  Sender: FDA-Public Use
  Company Number: IT-ABBOTT-13P-083-1041794-00

PATIENT
  Sex: Female

DRUGS (2)
  1. HUMIRA [Suspect]
     Indication: PSORIATIC ARTHROPATHY
  2. METHOTREXATE [Suspect]
     Indication: PRODUCT USED FOR UNKNOWN INDICATION

REACTIONS (2)
  - Cranial nerve paralysis [Recovered/Resolved]
  - Herpes zoster [Unknown]
